FAERS Safety Report 23700219 (Version 1)
Quarter: 2024Q2

REPORT INFORMATION
  Report Type: Spontaneous
  Country: ES (occurrence: ES)
  Receive Date: 20240403
  Receipt Date: 20240403
  Transmission Date: 20240716
  Serious: Yes (Life-Threatening, Hospitalization)
  Sender: FDA-Public Use
  Company Number: None

PATIENT
  Age: 80 Year
  Sex: Male
  Weight: 76.7 kg

DRUGS (4)
  1. VINCRISTINE [Suspect]
     Active Substance: VINCRISTINE
     Indication: Central nervous system lymphoma
     Dosage: VINCRISTINE 2 MG IV IN 10 MINUTES ON 02/29. 5 CYCLE
     Route: 065
     Dates: start: 20231201, end: 20240229
  2. RITUXIMAB [Suspect]
     Active Substance: RITUXIMAB
     Indication: Central nervous system lymphoma
     Dosage: RITUXIMAB 500 MG/M2 (919 MG) IV 5 CYCLE ON 02/28.
     Route: 065
     Dates: start: 20231201, end: 20240228
  3. METHOTREXATE (METHOTREXATE SODIUM) [Suspect]
     Active Substance: METHOTREXATE SODIUM
     Indication: Central nervous system lymphoma
     Dosage: METHOTREXATE 2000 MG/M2 (3676 MG) IV ON 02/28, TO BE ADMINISTERED IN 2 HOURS. 5 CYCLE
     Route: 065
     Dates: start: 20231201, end: 20240228
  4. PROCARBAZINE HYDROCHLORIDE [Suspect]
     Active Substance: PROCARBAZINE HYDROCHLORIDE
     Indication: Central nervous system lymphoma
     Dosage: PROCARBACINA (NATULAN) 200 MG/D DEL 28/02 AL 05/03.. 5 CICLO.
     Route: 065
     Dates: start: 20231201, end: 20240305

REACTIONS (1)
  - Agranulocytosis [Recovered/Resolved]

NARRATIVE: CASE EVENT DATE: 20240311
